FAERS Safety Report 4288497-1 (Version None)
Quarter: 2004Q1

REPORT INFORMATION
  Report Type: 
  Country: None (occurrence: None)
  Receive Date: 20040205
  Receipt Date: 20040120
  Transmission Date: 20041129
  Serious: Yes (Disabling)
  Sender: FDA-Public Use
  Company Number: USA040156991

PATIENT
  Age: 49 Year
  Sex: Female
  Weight: 58.9676 kg

DRUGS (1)
  1. HUMULIN N [Suspect]
     Dosage: 40 U/2 DAY
     Dates: start: 20030101

REACTIONS (7)
  - CARPAL TUNNEL SYNDROME [None]
  - CHROMATOPSIA [None]
  - CONDITION AGGRAVATED [None]
  - DYSSTASIA [None]
  - LOCALISED OSTEOARTHRITIS [None]
  - NERVE INJURY [None]
  - PHOTOPSIA [None]
